FAERS Safety Report 6698090-9 (Version None)
Quarter: 2010Q2

REPORT INFORMATION
  Report Type: 
  Country: None (occurrence: None)
  Receive Date: 20100427
  Receipt Date: 20100416
  Transmission Date: 20101027
  Serious: Yes (Death, Hospitalization, Other)
  Sender: FDA-Public Use
  Company Number: US-JNJFOC-20091204346

PATIENT
  Sex: Female

DRUGS (6)
  1. REMICADE [Suspect]
     Indication: RHEUMATOID ARTHRITIS
     Route: 042
  2. ASPIRIN [Concomitant]
     Indication: ANGIOPATHY
  3. VESICARE [Concomitant]
  4. NEXIUM [Concomitant]
     Indication: GASTROOESOPHAGEAL REFLUX DISEASE
  5. RECLAST [Concomitant]
     Indication: OSTEOPOROSIS
  6. LOPID [Concomitant]
     Indication: LIPIDS INCREASED

REACTIONS (4)
  - CORONARY ARTERY DISEASE [None]
  - IMPAIRED HEALING [None]
  - MYOCARDIAL INFARCTION [None]
  - SEPSIS [None]
